FAERS Safety Report 7210505-6 (Version None)
Quarter: 2011Q1

REPORT INFORMATION
  Report Type: 
  Country: None (occurrence: None)
  Receive Date: 20110105
  Receipt Date: 20101227
  Transmission Date: 20110831
  Serious: Yes (Other)
  Sender: FDA-Public Use
  Company Number: DE-ELI_LILLY_AND_COMPANY-DE201012006301

PATIENT
  Age: 70 Year
  Sex: Female

DRUGS (9)
  1. FORTEO [Suspect]
     Indication: OSTEOPOROSIS
     Route: 058
     Dates: start: 20100403
  2. ERGENYL CHRONO [Concomitant]
     Dosage: 300 MG, UNK
  3. VITAMIN D3 [Concomitant]
  4. CALCIUM [Concomitant]
  5. METOPROLOL TARTRATE [Concomitant]
     Dosage: 200 MG, UNK
  6. OMEPRAZOLE [Concomitant]
  7. ASPIRIN [Concomitant]
     Dosage: 100 MG, UNK
  8. TORASEMID [Concomitant]
  9. KINZALMONO [Concomitant]
     Dosage: 80 MG, UNK

REACTIONS (8)
  - LOSS OF CONSCIOUSNESS [None]
  - HAEMATOMA [None]
  - FALL [None]
  - OEDEMA PERIPHERAL [None]
  - PAIN [None]
  - EPILEPSY [None]
  - BLOOD CALCIUM INCREASED [None]
  - BLOOD URIC ACID INCREASED [None]
